FAERS Safety Report 7581249-6 (Version None)
Quarter: 2011Q2

REPORT INFORMATION
  Report Type: 
  Country: None (occurrence: None)
  Receive Date: 20110629
  Receipt Date: 20110620
  Transmission Date: 20111010
  Serious: Yes (Other)
  Sender: FDA-Public Use
  Company Number: US-ASTRAZENECA-2010SE55686

PATIENT
  Age: 63 Year
  Sex: Female

DRUGS (2)
  1. NEXIUM [Suspect]
     Route: 048
  2. NEXIUM [Suspect]
     Dosage: GENERIC
     Route: 048

REACTIONS (5)
  - NEOPLASM MALIGNANT [None]
  - DRUG INEFFECTIVE [None]
  - DEMENTIA ALZHEIMER'S TYPE [None]
  - ULCER [None]
  - FEEDING TUBE COMPLICATION [None]
